FAERS Safety Report 18609353 (Version 4)
Quarter: 2021Q1

REPORT INFORMATION
  Report Type: Spontaneous
  Country: DE (occurrence: DE)
  Receive Date: 20201214
  Receipt Date: 20210120
  Transmission Date: 20210419
  Serious: Yes (Hospitalization)
  Sender: FDA-Public Use
  Company Number: DE-PFIZER INC-2020490532

PATIENT
  Age: 40 Year
  Sex: Female
  Weight: 49 kg

DRUGS (8)
  1. OLIMEL [Suspect]
     Active Substance: AMINO ACIDS\DEXTROSE\SOYBEAN OIL
     Indication: PARENTERAL NUTRITION
     Dosage: 1.5 LITER
     Route: 051
     Dates: start: 20200708, end: 20201015
  2. PANTOZOL [Suspect]
     Active Substance: PANTOPRAZOLE SODIUM
     Dosage: 40 MG (40 MILLIGRAM)
     Route: 042
     Dates: start: 20200706
  3. CERNEVIT [Suspect]
     Active Substance: VITAMINS
     Indication: PARENTERAL NUTRITION
     Dosage: UNK UNK, QD
     Route: 051
     Dates: start: 20200708
  4. OLIMEL [Suspect]
     Active Substance: AMINO ACIDS\DEXTROSE\SOYBEAN OIL
     Indication: SHORT-BOWEL SYNDROME
     Dosage: 1.3 LITER
     Route: 051
     Dates: start: 20201016, end: 20201017
  5. ADDEL TRACE [Suspect]
     Active Substance: ELECTROLYTES NOS\MINERALS
     Indication: PARENTERAL NUTRITION
     Dosage: UNK UNK, QD
     Route: 051
     Dates: start: 20200708
  6. OLIMEL [Suspect]
     Active Substance: AMINO ACIDS\DEXTROSE\SOYBEAN OIL
     Indication: PARENTERAL NUTRITION
     Dosage: 1.5 L (1.5 LITER)
     Route: 051
     Dates: start: 20201018
  7. MIRTAZAPIN [Suspect]
     Active Substance: MIRTAZAPINE
     Dosage: 45 MILLIGRAM
     Route: 048
     Dates: start: 20200706
  8. TAVOR EXPIDET [Concomitant]
     Active Substance: LORAZEPAM
     Dosage: 1 MG (1 MILLIGRAM)
     Route: 060
     Dates: start: 20200929

REACTIONS (5)
  - Blood triglycerides increased [Recovering/Resolving]
  - Pain [Not Recovered/Not Resolved]
  - Lipase increased [Recovered/Resolved]
  - Blood bilirubin increased [Not Recovered/Not Resolved]
  - Jaundice [Not Recovered/Not Resolved]

NARRATIVE: CASE EVENT DATE: 20200820
